FAERS Safety Report 14808754 (Version 3)
Quarter: 2023Q1

REPORT INFORMATION
  Report Type: Spontaneous
  Country: US (occurrence: None)
  Receive Date: 20180425
  Receipt Date: 20230227
  Transmission Date: 20230417
  Serious: Yes (Hospitalization, Other)
  Sender: FDA-Public Use
  Company Number: 2018SE49514

PATIENT
  Age: 21439 Day
  Sex: Male

DRUGS (21)
  1. NEXIUM [Suspect]
     Active Substance: ESOMEPRAZOLE MAGNESIUM
     Dosage: FOR MULTIPLE AND VARIOUS YEARS.
     Route: 048
  2. NEXIUM 24HR [Suspect]
     Active Substance: ESOMEPRAZOLE MAGNESIUM
     Dosage: FOR MULTIPLE AND VARIOUS YEARS.
     Route: 048
  3. PRILOSEC [Suspect]
     Active Substance: OMEPRAZOLE MAGNESIUM
     Dosage: FOR MULTIPLE AND VARIOUS YEARS.
     Route: 048
  4. PRILOSEC OTC [Suspect]
     Active Substance: OMEPRAZOLE MAGNESIUM
     Dosage: FOR MULTIPLE AND VARIOUS YEARS.
     Route: 048
  5. PREVACID [Suspect]
     Active Substance: LANSOPRAZOLE
     Dosage: FOR MULTIPLE AND VARIOUS YEARS.
     Route: 065
  6. PROTONIX [Suspect]
     Active Substance: PANTOPRAZOLE SODIUM
     Dosage: FOR MULTIPLE AND VARIOUS YEARS.
     Route: 065
  7. DEXILANT [Suspect]
     Active Substance: DEXLANSOPRAZOLE
     Dosage: FOR MULTIPLE AND VARIOUS YEARS.
     Route: 065
  8. PREVACID 24 HR [Suspect]
     Active Substance: LANSOPRAZOLE
     Dosage: FOR MULTIPLE AND VARIOUS YEARS.
     Route: 065
  9. KEFLEX [Concomitant]
     Active Substance: CEPHALEXIN
  10. SIMVASTATIN [Concomitant]
     Active Substance: SIMVASTATIN
  11. LISINOPRIL [Concomitant]
     Active Substance: LISINOPRIL
  12. PERCOCET [Concomitant]
     Active Substance: ACETAMINOPHEN\OXYCODONE HYDROCHLORIDE
     Dosage: 5/325 MG 1-2 TABLETS
  13. NICOTINE [Concomitant]
     Active Substance: NICOTINE
     Dosage: PATCHES 14 MG
  14. WARFARIN [Concomitant]
     Active Substance: WARFARIN
     Dosage: PATCHES 14 MG
  15. CITALOPRAM [Concomitant]
     Active Substance: CITALOPRAM HYDROBROMIDE
     Dosage: PATCHES 14 MG
  16. TRAZODONE [Concomitant]
     Active Substance: TRAZODONE HYDROCHLORIDE
     Dosage: PATCHES 14 MG
  17. IMODIUM [Concomitant]
     Active Substance: LOPERAMIDE HYDROCHLORIDE
     Dosage: PATCHES 14 MG
  18. NASTURTIUM OFFICINALE/SODIUM SULFATE/MYOSOTIS ARVENSIS/GERANIUM ROBERT [Concomitant]
     Dosage: PATCHES 14 MG
  19. COUMADIN [Concomitant]
     Active Substance: WARFARIN SODIUM
     Dosage: PATCHES 14 MG
  20. ARIXTRA [Concomitant]
     Active Substance: FONDAPARINUX SODIUM
     Dosage: PATCHES 14 MG
  21. SYNTHROID [Concomitant]
     Active Substance: LEVOTHYROXINE SODIUM
     Dosage: PATCHES 14 MG

REACTIONS (5)
  - Chronic kidney disease [Unknown]
  - Acute kidney injury [Unknown]
  - Renal failure [Unknown]
  - Renal injury [Unknown]
  - Rebound acid hypersecretion [Unknown]

NARRATIVE: CASE EVENT DATE: 20110830
